FAERS Safety Report 17109242 (Version 2)
Quarter: 2019Q4

REPORT INFORMATION
  Report Type: Report from Study
  Country: US (occurrence: US)
  Receive Date: 20191204
  Receipt Date: 20191216
  Transmission Date: 20200122
  Serious: Yes (Death, Other)
  Sender: FDA-Public Use
  Company Number: US-ACADIA PHARMACEUTICALS INC.-ACA-2019-014893

PATIENT
  Age: 60 Year
  Sex: Male

DRUGS (4)
  1. NUPLAZID [Suspect]
     Active Substance: PIMAVANSERIN TARTRATE
     Indication: HALLUCINATION
  2. NUPLAZID [Suspect]
     Active Substance: PIMAVANSERIN TARTRATE
     Indication: PARKINSON^S DISEASE
     Dosage: 34 MG, QD CAPSULE AND 10 MG TABLET, TOTAL DOSE 44 MG
     Route: 048
     Dates: start: 20190627, end: 20191121
  3. NUPLAZID [Suspect]
     Active Substance: PIMAVANSERIN TARTRATE
     Indication: HALLUCINATION
  4. NUPLAZID [Suspect]
     Active Substance: PIMAVANSERIN TARTRATE
     Indication: PARKINSON^S DISEASE
     Dosage: 34 MG, QD CAPSULE AND 10 MG TABLET, TOTAL DOSE 44 MG
     Route: 048
     Dates: start: 20190627, end: 20191121

REACTIONS (3)
  - Cardiac arrest [Fatal]
  - Hypoxia [Fatal]
  - Overdose [Unknown]

NARRATIVE: CASE EVENT DATE: 20190627
